FAERS Safety Report 8803074 (Version 1)
Quarter: 2012Q4

REPORT INFORMATION
  Report Type: 
  Country: MY (occurrence: MY)
  Receive Date: 20120924
  Receipt Date: 20120924
  Transmission Date: 20130627
  Serious: Yes (Other)
  Sender: FDA-Public Use
  Company Number: MY-RANBAXY-2012R3-60091

PATIENT
  Age: 19 Year
  Sex: Male

DRUGS (3)
  1. PANSEC [Suspect]
     Indication: HELICOBACTER INFECTION
     Dosage: 40 mg daily
     Route: 048
  2. KLACID [Suspect]
     Indication: HELICOBACTER INFECTION
     Dosage: 500 mg daily
     Route: 048
  3. SYNAMOX [Suspect]
     Indication: HELICOBACTER INFECTION
     Dosage: 1gm daily
     Route: 048

REACTIONS (3)
  - Pyrexia [Recovered/Resolved]
  - Dyspnoea [Recovered/Resolved]
  - Rash [Recovered/Resolved]
